FAERS Safety Report 8966551 (Version 1)
Quarter: 2012Q4

REPORT INFORMATION
  Report Type: 
  Country: US (occurrence: US)
  Receive Date: 20121214
  Receipt Date: 20121214
  Transmission Date: 20130627
  Serious: No
  Sender: FDA-Public Use
  Company Number: US-PFIZER INC-2012317008

PATIENT
  Age: 62 Year
  Sex: Female

DRUGS (2)
  1. LYRICA [Suspect]
     Dosage: 150 mg, 2x/day
     Route: 048
  2. LYRICA [Suspect]
     Dosage: 150 mg, UNK
     Route: 048

REACTIONS (2)
  - Vomiting [Recovered/Resolved]
  - Product quality issue [Unknown]
